FAERS Safety Report 10795356 (Version 2)
Quarter: 2015Q1

REPORT INFORMATION
  Report Type: Spontaneous
  Country: US (occurrence: US)
  Receive Date: 20150214
  Receipt Date: 20150216
  Transmission Date: 20150721
  Serious: No
  Sender: FDA-Public Use
  Company Number: US-GLAXOSMITHKLINE-A1083163A

PATIENT

DRUGS (2)
  1. NICORETTE [Suspect]
     Active Substance: NICOTINE
  2. NICORETTE [Suspect]
     Active Substance: NICOTINE
     Indication: EX-TOBACCO USER

REACTIONS (2)
  - Drug ineffective [Unknown]
  - Nicotine dependence [Not Recovered/Not Resolved]
